FAERS Safety Report 4528987-7 (Version None)
Quarter: 2004Q4

REPORT INFORMATION
  Report Type: 
  Country: None (occurrence: None)
  Receive Date: 20041216
  Receipt Date: 20030602
  Transmission Date: 20050328
  Serious: Yes (Life-Threatening)
  Sender: FDA-Public Use
  Company Number: GB-GLAXOSMITHKLINE-B0301665A

PATIENT
  Age: 20 Year
  Sex: Female

DRUGS (3)
  1. SEROXAT [Suspect]
     Indication: DEPRESSION
     Dates: start: 20011123, end: 20020701
  2. ALCOHOL [Suspect]
  3. LEVONORGESTREL AND ETHINYL ESTRADIOL [Concomitant]

REACTIONS (17)
  - AGGRESSION [None]
  - ALCOHOL INTERACTION [None]
  - COORDINATION ABNORMAL [None]
  - CRYING [None]
  - DIZZINESS [None]
  - DRUG WITHDRAWAL SYNDROME [None]
  - MOOD SWINGS [None]
  - NAUSEA [None]
  - NERVOUSNESS [None]
  - NIGHTMARE [None]
  - PERSONALITY CHANGE [None]
  - PHYSICAL ASSAULT [None]
  - RESTLESSNESS [None]
  - SELF-INJURIOUS IDEATION [None]
  - SOMNOLENCE [None]
  - SUICIDAL IDEATION [None]
  - VOMITING [None]
